FAERS Safety Report 14212298 (Version 1)
Quarter: 2017Q4

REPORT INFORMATION
  Report Type: Spontaneous
  Country: CN (occurrence: CN)
  Receive Date: 20171121
  Receipt Date: 20171121
  Transmission Date: 20180321
  Serious: Yes (Other)
  Sender: FDA-Public Use
  Company Number: CN-IMPAX LABORATORIES, INC-2017-IPXL-03287

PATIENT
  Age: 19 Year
  Sex: Male
  Weight: 90 kg

DRUGS (1)
  1. ALBENZA [Suspect]
     Active Substance: ALBENDAZOLE
     Indication: ENTEROBIASIS
     Dosage: 2 DF, 1 /DAY
     Route: 048
     Dates: start: 20171001, end: 20171019

REACTIONS (2)
  - Helminthic infection [Unknown]
  - Overdose [Unknown]

NARRATIVE: CASE EVENT DATE: 20171110
